FAERS Safety Report 21808908 (Version 2)
Quarter: 2023Q1

REPORT INFORMATION
  Report Type: Spontaneous
  Country: US (occurrence: US)
  Receive Date: 20230103
  Receipt Date: 20230116
  Transmission Date: 20230417
  Serious: No
  Sender: FDA-Public Use
  Company Number: US-TEVA-2022-US-2841563

PATIENT
  Age: 94 Year
  Sex: Male

DRUGS (1)
  1. MUPIROCIN [Suspect]
     Active Substance: MUPIROCIN
     Indication: Wound
     Dosage: STRENGTH: 2 %
     Route: 065

REACTIONS (3)
  - Mouth swelling [Unknown]
  - Lip swelling [Unknown]
  - Product prescribing issue [Unknown]
